FAERS Safety Report 10519257 (Version 1)
Quarter: 2014Q4

REPORT INFORMATION
  Report Type: Spontaneous
  Country: US (occurrence: None)
  Receive Date: 20141014
  Receipt Date: 20141014
  Transmission Date: 20150528
  Serious: Yes (Life-Threatening, Hospitalization)
  Sender: FDA-Public Use
  Company Number: None

PATIENT
  Age: 53 Year
  Sex: Female
  Weight: 89.3 kg

DRUGS (2)
  1. ESTROGENS\MEDROXYPROGESTERONE [Suspect]
     Active Substance: ESTROGENS\MEDROXYPROGESTERONE
     Indication: PAIN
     Route: 048
     Dates: start: 20140117, end: 20140317
  2. ESTROGENS\MEDROXYPROGESTERONE [Suspect]
     Active Substance: ESTROGENS\MEDROXYPROGESTERONE
     Indication: THROMBOPHLEBITIS SUPERFICIAL
     Route: 048
     Dates: start: 20140117, end: 20140317

REACTIONS (3)
  - Nausea [None]
  - Abdominal pain [None]
  - Vomiting [None]

NARRATIVE: CASE EVENT DATE: 20140317
